FAERS Safety Report 10025996 (Version 1)
Quarter: 2014Q1

REPORT INFORMATION
  Report Type: Spontaneous
  Country: AU (occurrence: None)
  Receive Date: 20140318
  Receipt Date: 20140318
  Transmission Date: 20141002
  Serious: Yes (Other)
  Sender: FDA-Public Use
  Company Number: 2014AP001811

PATIENT
  Age: 43 Year
  Sex: Male

DRUGS (16)
  1. CYPROTERONE [Suspect]
     Indication: GENDER IDENTITY DISORDER
     Dates: start: 1995
  2. RISPERIDONE (RISPERIDONE) [Suspect]
     Indication: MAJOR DEPRESSION
  3. OLANZAPINE (OLANZAPINE) [Suspect]
     Indication: MAJOR DEPRESSION
  4. FLUOXETINE (FLUOXETINE) [Suspect]
     Indication: MAJOR DEPRESSION
  5. AMISULPRIDE (AMISULPRIDE) [Suspect]
     Indication: MAJOR DEPRESSION
     Dates: start: 201005
  6. ESTRADIOL VALERATE (ESTRADIOL VALERATE) [Suspect]
     Indication: GENDER IDENTITY DISORDER
     Dates: start: 2005
  7. QUETIAPINE (QUETIAPINE) [Suspect]
     Indication: MAJOR DEPRESSION
  8. CONJUGATED ESTROGENS [Suspect]
     Indication: GENDER IDENTITY DISORDER
     Dates: start: 1995
  9. SPIRONOLACTONE (SPIRONOLACTONE) [Suspect]
     Indication: GENDER IDENTITY DISORDER
     Dates: start: 2006
  10. DOXEPIN (DOXEPIN) (DOXEPIN) [Suspect]
     Indication: MAJOR DEPRESSION
  11. LEVOMEPROMAZINE [Suspect]
     Indication: MAJOR DEPRESSION
  12. ZOPICLONE (ZOPICLONE) [Concomitant]
  13. DOXORUBICIN (DOXORUBICIN) [Concomitant]
  14. CYCLOPHOSPHAMIDE (CYCLOPHOSPHAMIDE) [Concomitant]
  15. PLACITAXEL (PLACITAXEL) [Concomitant]
  16. CLONAZEPAM [Suspect]

REACTIONS (6)
  - Invasive ductal breast carcinoma [None]
  - Hyperprolactinaemia [None]
  - Overdose [None]
  - Depression [None]
  - Metastases to bone [None]
  - Metastases to liver [None]
